FAERS Safety Report 9731234 (Version 1)
Quarter: 2013Q4

REPORT INFORMATION
  Report Type: Spontaneous
  Country: ZA (occurrence: ZA)
  Receive Date: 20131203
  Receipt Date: 20131203
  Transmission Date: 20140711
  Serious: Yes (Hospitalization)
  Sender: FDA-Public Use
  Company Number: ZA-B.I. PHARMACEUTICALS,INC./RIDGEFIELD-2013-BI-39717ZA

PATIENT
  Age: 6 Decade
  Sex: Male

DRUGS (1)
  1. PEXOLA [Suspect]
     Indication: RESTLESS LEGS SYNDROME
     Dosage: 0.5 MG
     Route: 048

REACTIONS (2)
  - Restless legs syndrome [Not Recovered/Not Resolved]
  - Dysphemia [Not Recovered/Not Resolved]
